FAERS Safety Report 10693919 (Version 1)
Quarter: 2015Q1

REPORT INFORMATION
  Report Type: Spontaneous
  Country: US (occurrence: US)
  Receive Date: 20150106
  Receipt Date: 20150106
  Transmission Date: 20150721
  Serious: No
  Sender: FDA-Public Use
  Company Number: US-GLAXOSMITHKLINE-US2014GSK045449

PATIENT
  Age: 62 Year
  Sex: Male

DRUGS (3)
  1. PENILE INJECTIONS (UNKNOWN MEDICATION) [Concomitant]
     Indication: ERECTILE DYSFUNCTION
  2. VOTRIENT [Suspect]
     Active Substance: PAZOPANIB HYDROCHLORIDE
     Indication: METASTATIC RENAL CELL CARCINOMA
     Dosage: 800 MG, UNK
     Route: 048
     Dates: start: 201403
  3. LEVITRA [Concomitant]
     Active Substance: VARDENAFIL HYDROCHLORIDE TRIHYDRATE

REACTIONS (2)
  - Hypertension [Unknown]
  - Diarrhoea [Unknown]
